FAERS Safety Report 8220043-X (Version None)
Quarter: 2012Q1

REPORT INFORMATION
  Report Type: 
  Country: None (occurrence: None)
  Receive Date: 20120320
  Receipt Date: 20120306
  Transmission Date: 20120608
  Serious: Yes (Other)
  Sender: FDA-Public Use
  Company Number: DE-ROCHE-533630

PATIENT
  Sex: Female

DRUGS (2)
  1. BONIVA [Suspect]
     Route: 042
  2. BONIVA [Suspect]
     Indication: OSTEOPOROSIS
     Route: 042

REACTIONS (12)
  - COUGH [None]
  - PAIN IN EXTREMITY [None]
  - MYALGIA [None]
  - ELECTROLYTE IMBALANCE [None]
  - RASH [None]
  - PARAESTHESIA [None]
  - BONE PAIN [None]
  - ABDOMINAL PAIN [None]
  - DIPLEGIA [None]
  - INFLUENZA LIKE ILLNESS [None]
  - NASOPHARYNGITIS [None]
  - CHILLS [None]
